FAERS Safety Report 7409526-X (Version None)
Quarter: 2011Q2

REPORT INFORMATION
  Report Type: 
  Country: None (occurrence: None)
  Receive Date: 20110412
  Receipt Date: 20110405
  Transmission Date: 20111010
  Serious: Yes (Hospitalization)
  Sender: FDA-Public Use
  Company Number: NL-MEDIMMUNE-MEDI-0013050

PATIENT
  Sex: Male
  Weight: 4.3 kg

DRUGS (2)
  1. SYNAGIS [Suspect]
     Route: 030
     Dates: start: 20100110, end: 20100110
  2. SYNAGIS [Suspect]
     Route: 030
     Dates: start: 20100307, end: 20110405

REACTIONS (3)
  - GASTROENTERITIS VIRAL [None]
  - RHINORRHOEA [None]
  - RESPIRATORY TRACT INFECTION [None]
